FAERS Safety Report 5749813-4 (Version None)
Quarter: 2008Q2

REPORT INFORMATION
  Report Type: 
  Country: None (occurrence: None)
  Receive Date: 20080527
  Receipt Date: 20080523
  Transmission Date: 20081010
  Serious: Yes (Other)
  Sender: FDA-Public Use
  Company Number: GB-BRISTOL-MYERS SQUIBB COMPANY-14202303

PATIENT
  Age: 41 Year
  Sex: Female
  Weight: 55 kg

DRUGS (4)
  1. EFAVIRENZ [Suspect]
     Dates: start: 20000801
  2. MICRONOR [Interacting]
     Indication: CONTRACEPTION
     Route: 048
     Dates: start: 20071129
  3. LORATADINE [Concomitant]
     Indication: ARTHROPOD BITE
     Dates: start: 20080401, end: 20080401
  4. TRUVADA [Concomitant]

REACTIONS (2)
  - INHIBITORY DRUG INTERACTION [None]
  - PREGNANCY [None]
